FAERS Safety Report 19487586 (Version 1)
Quarter: 2021Q3

REPORT INFORMATION
  Report Type: Spontaneous
  Country: AU (occurrence: AU)
  Receive Date: 20210702
  Receipt Date: 20210702
  Transmission Date: 20211014
  Serious: Yes (Death, Hospitalization, Other)
  Sender: FDA-Public Use
  Company Number: AU-LUPIN PHARMACEUTICALS INC.-2021-10818

PATIENT
  Age: 67 Year
  Sex: Female

DRUGS (6)
  1. HYDROXYCHLOROQUINE [Concomitant]
     Active Substance: HYDROXYCHLOROQUINE
     Indication: RHEUMATOID ARTHRITIS
     Dosage: 200 MILLIGRAM, QD
     Route: 065
     Dates: start: 2012
  2. METHOTREXATE. [Suspect]
     Active Substance: METHOTREXATE
     Indication: RHEUMATOID ARTHRITIS
     Dosage: 15 MILLIGRAM, WEEKLY
     Route: 065
     Dates: start: 2012
  3. CEFTRIAXONE. [Concomitant]
     Active Substance: CEFTRIAXONE
     Indication: ACUTE RESPIRATORY DISTRESS SYNDROME
     Dosage: UNK
     Route: 042
  4. AZITHROMYCIN ANHYDROUS. [Concomitant]
     Active Substance: AZITHROMYCIN ANHYDROUS
     Indication: ACUTE RESPIRATORY DISTRESS SYNDROME
     Dosage: UNK
     Route: 065
  5. METHOTREXATE. [Suspect]
     Active Substance: METHOTREXATE
     Dosage: 7.5 MILLIGRAM, WEEKLY
     Route: 065
  6. METHYLPREDNISOLONE. [Suspect]
     Active Substance: METHYLPREDNISOLONE
     Indication: ACUTE RESPIRATORY DISTRESS SYNDROME
     Dosage: 500 MILLIGRAM
     Route: 042
     Dates: start: 2019

REACTIONS (3)
  - Epstein-Barr virus associated lymphoma [Fatal]
  - Angiocentric lymphoma [Fatal]
  - Condition aggravated [Fatal]
